FAERS Safety Report 7572062-4 (Version None)
Quarter: 2011Q2

REPORT INFORMATION
  Report Type: 
  Country: None (occurrence: None)
  Receive Date: 20110624
  Receipt Date: 20110613
  Transmission Date: 20111010
  Serious: Yes (Hospitalization)
  Sender: FDA-Public Use
  Company Number: FR-JNJFOC-20100607036

PATIENT
  Sex: Female
  Weight: 56 kg

DRUGS (15)
  1. HYDROCORTISONE [Concomitant]
     Indication: COLITIS ULCERATIVE
     Route: 048
     Dates: start: 20091201
  2. DICETEL [Concomitant]
     Indication: COLITIS ULCERATIVE
     Route: 048
  3. REMICADE [Suspect]
     Indication: CROHN'S DISEASE
     Dosage: 5MG/KG
     Route: 042
     Dates: start: 20091208
  4. FERROUS SULFATE TAB [Concomitant]
     Indication: COLITIS ULCERATIVE
  5. REMICADE [Suspect]
     Dosage: 5MG/KG
     Route: 042
     Dates: start: 20091208
  6. NEXIUM [Concomitant]
     Indication: COLITIS ULCERATIVE
  7. REMICADE [Suspect]
     Dosage: 5MG/KG
     Route: 042
     Dates: start: 20091027
  8. ROWASA [Concomitant]
     Indication: COLITIS ULCERATIVE
     Dates: start: 20060101
  9. REMICADE [Suspect]
     Dosage: 5MG/KG
     Route: 042
     Dates: start: 20100202, end: 20100330
  10. REMICADE [Suspect]
     Dosage: 5MG/KG
     Route: 042
     Dates: start: 20091110
  11. REMICADE [Suspect]
     Indication: COLITIS ULCERATIVE
     Dosage: 5MG/KG
     Route: 042
     Dates: start: 20091110
  12. REMICADE [Suspect]
     Dosage: 5MG/KG
     Route: 042
     Dates: start: 20091027
  13. REMICADE [Suspect]
     Dosage: 5MG/KG
     Route: 042
     Dates: start: 20100202, end: 20100330
  14. AZATHIOPRINE SODIUM [Concomitant]
     Indication: COLITIS ULCERATIVE
     Route: 048
     Dates: start: 20091001
  15. ROWASA [Concomitant]
     Indication: CROHN'S DISEASE
     Dates: start: 20060101

REACTIONS (1)
  - SYSTEMIC LUPUS ERYTHEMATOSUS [None]
